FAERS Safety Report 24872673 (Version 4)
Quarter: 2025Q2

REPORT INFORMATION
  Report Type: Report from Study
  Country: US (occurrence: US)
  Receive Date: 20250122
  Receipt Date: 20250429
  Transmission Date: 20250717
  Serious: No
  Sender: SUNOVION
  Company Number: US-SMPA-2025SPA000269AA

PATIENT

DRUGS (2)
  1. ORGOVYX [Suspect]
     Active Substance: RELUGOLIX
     Indication: Prostate cancer
     Dosage: 360 MG, SINGLE
     Route: 048
     Dates: start: 20241218, end: 20241218
  2. ORGOVYX [Suspect]
     Active Substance: RELUGOLIX
     Dosage: 120 MG, QD
     Route: 048
     Dates: start: 20241219

REACTIONS (21)
  - Limb discomfort [Unknown]
  - Nocturia [Unknown]
  - Emotional distress [Unknown]
  - Central obesity [Unknown]
  - Ejaculation failure [Unknown]
  - Muscle atrophy [Unknown]
  - Skin exfoliation [Unknown]
  - Obsessive-compulsive disorder [Unknown]
  - Skin wrinkling [Unknown]
  - Night sweats [Unknown]
  - Anxiety [Unknown]
  - Amnesia [Unknown]
  - Abulia [Unknown]
  - Myalgia [Unknown]
  - Bone pain [Unknown]
  - Fatigue [Unknown]
  - Asthenia [Unknown]
  - Hot flush [Not Recovered/Not Resolved]
  - Libido decreased [Unknown]
  - Insomnia [Unknown]
  - Middle insomnia [Unknown]
